FAERS Safety Report 7293311-6 (Version None)
Quarter: 2011Q1

REPORT INFORMATION
  Report Type: 
  Country: None (occurrence: None)
  Receive Date: 20110215
  Receipt Date: 20110210
  Transmission Date: 20110831
  Serious: Yes (Death)
  Sender: FDA-Public Use
  Company Number: MX-ASTRAZENECA-2011SE08393

PATIENT
  Sex: Female

DRUGS (1)
  1. FASLODEX [Suspect]
     Indication: BREAST CANCER
     Dosage: ONE APPLICATION PER MONTH, THE PATIENT UNDERWENT 6 MONTHLY DOSAGES
     Route: 030

REACTIONS (3)
  - ASCITES [None]
  - HEPATIC FAILURE [None]
  - TRANSAMINASES INCREASED [None]
